FAERS Safety Report 17993731 (Version 2)
Quarter: 2020Q3

REPORT INFORMATION
  Report Type: Spontaneous
  Country: IT (occurrence: IT)
  Receive Date: 20200708
  Receipt Date: 20200710
  Transmission Date: 20201103
  Serious: Yes (Other)
  Sender: FDA-Public Use
  Company Number: NVSC2020IT151814

PATIENT
  Age: 37 Year
  Sex: Female

DRUGS (4)
  1. IXEKIZUMAB [Suspect]
     Active Substance: IXEKIZUMAB
     Dosage: 80 MG, MONTHLY (EVERY 4 WEEKS)
     Route: 058
  2. ETANERCEPT [Suspect]
     Active Substance: ETANERCEPT
     Indication: PSORIASIS
     Dosage: 50 MG, BIW
     Route: 058
  3. IXEKIZUMAB [Suspect]
     Active Substance: IXEKIZUMAB
     Indication: PSORIASIS
     Dosage: 80 MG AT WEEKS 2, 4, 6, 8, 10 AND 12)
     Route: 058
  4. IXEKIZUMAB [Suspect]
     Active Substance: IXEKIZUMAB
     Dosage: 80 MG (AT WEEK 0)
     Route: 058

REACTIONS (1)
  - Drug ineffective [Unknown]
